FAERS Safety Report 5899246-5 (Version None)
Quarter: 2008Q3

REPORT INFORMATION
  Report Type: 
  Country: None (occurrence: None)
  Receive Date: 20080925
  Receipt Date: 20080918
  Transmission Date: 20090109
  Serious: Yes (Death)
  Sender: FDA-Public Use
  Company Number: US-GENENTECH-265909

PATIENT
  Age: 55 Year
  Sex: Female
  Weight: 66.5 kg

DRUGS (7)
  1. AVASTIN [Suspect]
     Indication: UTERINE CANCER
     Dosage: 5 MG/KG, D 1 OR 2 + D 15 OR 16
     Route: 042
     Dates: start: 20080609
  2. SORAFENIB [Suspect]
     Indication: UTERINE CANCER
     Dosage: 200 MG, BID D 1-5 QWEEK
     Route: 048
     Dates: start: 20080609, end: 20080623
  3. SORAFENIB [Suspect]
     Dosage: 100 MG, QD
     Route: 048
     Dates: start: 20080703
  4. PROPRANOLOL [Concomitant]
     Indication: DRUG USE FOR UNKNOWN INDICATION
  5. LOSARTAN [Concomitant]
     Indication: DRUG USE FOR UNKNOWN INDICATION
  6. VITAMIN B6 [Concomitant]
     Indication: DRUG USE FOR UNKNOWN INDICATION
  7. IBUPROFEN [Concomitant]
     Indication: DRUG USE FOR UNKNOWN INDICATION

REACTIONS (2)
  - DEEP VEIN THROMBOSIS [None]
  - SUDDEN DEATH [None]
